FAERS Safety Report 8830231 (Version 1)
Quarter: 2012Q4

REPORT INFORMATION
  Report Type: Spontaneous
  Country: US (occurrence: None)
  Receive Date: 20121005
  Receipt Date: 20121005
  Transmission Date: 20130627
  Serious: Yes (Life-Threatening, Hospitalization)
  Sender: FDA-Public Use
  Company Number: None

PATIENT
  Age: 27 Year
  Sex: Female
  Weight: 95.4 kg

DRUGS (6)
  1. CARBOPLATIN [Suspect]
     Indication: OVARIAN CANCER
     Dosage: once
     Dates: start: 20120724
  2. ESCITALOPRAM [Concomitant]
  3. MULTIVITAMIN [Concomitant]
  4. OLAPARIB [Concomitant]
  5. DEXAMETHASONE [Concomitant]
  6. ONDANSETRON [Concomitant]

REACTIONS (7)
  - Pruritus [None]
  - Oral pruritus [None]
  - Flushing [None]
  - Erythema [None]
  - Paraesthesia oral [None]
  - Blood pressure decreased [None]
  - Heart rate increased [None]
